FAERS Safety Report 6898217-X (Version None)
Quarter: 2010Q3

REPORT INFORMATION
  Report Type: 
  Country: None (occurrence: None)
  Receive Date: 20100802
  Receipt Date: 20070921
  Transmission Date: 20110219
  Serious: No
  Sender: FDA-Public Use
  Company Number: US-PFIZER INC-2007078201

PATIENT
  Sex: Female

DRUGS (1)
  1. LYRICA [Suspect]
     Indication: PAIN

REACTIONS (6)
  - DIZZINESS [None]
  - DRUG INEFFECTIVE [None]
  - FEELING DRUNK [None]
  - MENTAL DISORDER [None]
  - VISION BLURRED [None]
  - WEIGHT INCREASED [None]
